FAERS Safety Report 8264679-9 (Version None)
Quarter: 2012Q2

REPORT INFORMATION
  Report Type: 
  Country: None (occurrence: None)
  Receive Date: 20120406
  Receipt Date: 20120327
  Transmission Date: 20120825
  Serious: Yes (Other)
  Sender: FDA-Public Use
  Company Number: US-JNJFOC-20120313726

PATIENT
  Age: 33 Year
  Sex: Male

DRUGS (1)
  1. DIPHENHYDRAMINE HCL [Suspect]
     Indication: ELEVATED MOOD
     Route: 065

REACTIONS (3)
  - DYSKINESIA [None]
  - OVERDOSE [None]
  - DEPENDENCE [None]
